FAERS Safety Report 6758833-2 (Version None)
Quarter: 2010Q2

REPORT INFORMATION
  Report Type: 
  Country: None (occurrence: None)
  Receive Date: 20100607
  Receipt Date: 20100528
  Transmission Date: 20101027
  Serious: Yes (Other)
  Sender: FDA-Public Use
  Company Number: GXKR2010GB06014

PATIENT
  Age: 62 Year
  Sex: Female
  Weight: 85 kg

DRUGS (5)
  1. DOXYCYCLINE (NGX) [Suspect]
     Indication: OTITIS MEDIA
     Dosage: 100 MG, QD
     Route: 048
     Dates: start: 20100323, end: 20100406
  2. ERYTHROMYCIN [Concomitant]
     Dosage: 250 MG, QID
     Route: 065
     Dates: start: 20100322, end: 20100401
  3. INDOMETHACIN SODIUM [Concomitant]
     Dosage: 100 MG, QD
     Route: 065
  4. LANSOPRAZOLE [Concomitant]
     Dosage: 30 MG, UNK
     Route: 048
  5. VOLTAREN [Concomitant]
     Dosage: 50 MG, TID
     Route: 065

REACTIONS (1)
  - TINNITUS [None]
